FAERS Safety Report 10853863 (Version 2)
Quarter: 2015Q1

REPORT INFORMATION
  Report Type: Report from Study
  Country: TR (occurrence: TR)
  Receive Date: 20150223
  Receipt Date: 20150313
  Transmission Date: 20150721
  Serious: Yes (Other)
  Sender: FDA-Public Use
  Company Number: PHHY2014TR164130

PATIENT
  Age: 32 Year
  Sex: Female
  Weight: 78.7 kg

DRUGS (2)
  1. EXJADE [Suspect]
     Active Substance: DEFERASIROX
     Indication: THALASSAEMIA BETA
     Dosage: 1250 MG, DAILY
     Route: 048
     Dates: start: 2009, end: 20150209
  2. EXJADE [Suspect]
     Active Substance: DEFERASIROX
     Dosage: 1500 MG, QD
     Route: 048
     Dates: start: 20150210

REACTIONS (5)
  - Blood glucose increased [Not Recovered/Not Resolved]
  - Oedema peripheral [Not Recovered/Not Resolved]
  - Nausea [Not Recovered/Not Resolved]
  - Portal vein cavernous transformation [Not Recovered/Not Resolved]
  - Dizziness [Not Recovered/Not Resolved]

NARRATIVE: CASE EVENT DATE: 20141125
